FAERS Safety Report 9384117 (Version 1)
Quarter: 2013Q3

REPORT INFORMATION
  Report Type: Spontaneous
  Country: US (occurrence: US)
  Receive Date: 20130705
  Receipt Date: 20130705
  Transmission Date: 20140515
  Serious: Yes (Hospitalization)
  Sender: FDA-Public Use
  Company Number: US-BRISTOL-MYERS SQUIBB COMPANY-19056431

PATIENT
  Sex: Male

DRUGS (2)
  1. ELIQUIS [Suspect]
  2. COUMADIN [Suspect]

REACTIONS (1)
  - Cerebrovascular accident [Unknown]
